FAERS Safety Report 7727105-1 (Version None)
Quarter: 2011Q3

REPORT INFORMATION
  Report Type: 
  Country: None (occurrence: None)
  Receive Date: 20110831
  Receipt Date: 20110726
  Transmission Date: 20111222
  Serious: Yes (Other)
  Sender: FDA-Public Use
  Company Number: WWISSUE-644

PATIENT
  Sex: Male

DRUGS (1)
  1. PHENOBARBITAL TAB [Suspect]
     Dates: start: 20110701, end: 20110726

REACTIONS (1)
  - THROAT IRRITATION [None]
